FAERS Safety Report 10063309 (Version 4)
Quarter: 2014Q2

REPORT INFORMATION
  Report Type: Report from Study
  Country: DE (occurrence: DE)
  Receive Date: 20140407
  Receipt Date: 20140603
  Transmission Date: 20141212
  Serious: Yes (Hospitalization)
  Sender: FDA-Public Use
  Company Number: DE-EISAI INC-E7389-02657-CLI-DE

PATIENT
  Age: 75 Year
  Sex: Male
  Weight: 65 kg

DRUGS (5)
  1. ERIBULIN [Suspect]
     Indication: NON-SMALL CELL LUNG CANCER
     Route: 041
     Dates: start: 20120426, end: 20120426
  2. NUTRIFLEX PLUS [Concomitant]
  3. DIFLUCAN [Concomitant]
  4. PIPRIL [Concomitant]
  5. COMBACTAM [Concomitant]

REACTIONS (1)
  - General physical health deterioration [Recovered/Resolved]
